FAERS Safety Report 8816882 (Version 3)
Quarter: 2013Q1

REPORT INFORMATION
  Report Type: Spontaneous
  Country: SE (occurrence: None)
  Receive Date: 20121002
  Receipt Date: 20121011
  Transmission Date: 20140127
  Serious: Yes (Hospitalization)
  Sender: FDA-Public Use
  Company Number: AUR-APL-2012-04092

PATIENT
  Age: 23 Year
  Sex: Female

DRUGS (1)
  1. LAMOTRIGINE (LAMOTRIGINE) [Suspect]
     Indication: DEPRESSION

REACTIONS (13)
  - Pyrexia [None]
  - Muscle rigidity [None]
  - Malaise [None]
  - Abdominal pain [None]
  - Transaminases increased [None]
  - Pneumonia mycoplasmal [None]
  - Angioedema [None]
  - Urticaria [None]
  - Drug reaction with eosinophilia and systemic symptoms [None]
  - Rash pruritic [None]
  - Rash generalised [None]
  - Lymph node pain [None]
  - Platelet count decreased [None]
